FAERS Safety Report 10720975 (Version 1)
Quarter: 2015Q1

REPORT INFORMATION
  Report Type: Spontaneous
  Country: US (occurrence: US)
  Receive Date: 20150119
  Receipt Date: 20150119
  Transmission Date: 20150721
  Serious: No
  Sender: FDA-Public Use
  Company Number: US-UNITED THERAPEUTICS-UNT-2014-006487

PATIENT
  Sex: Male
  Weight: 62.59 kg

DRUGS (1)
  1. REMODULIN [Suspect]
     Active Substance: TREPROSTINIL
     Indication: PULMONARY ARTERIAL HYPERTENSION
     Dosage: 0.1015 ?G/KG/MIN, CONTINUING
     Route: 058
     Dates: start: 20130117

REACTIONS (4)
  - Pruritus [Unknown]
  - Periorbital oedema [Unknown]
  - Infusion site pain [Unknown]
  - Erythema [Unknown]
